FAERS Safety Report 19083847 (Version 1)
Quarter: 2021Q2

REPORT INFORMATION
  Report Type: Spontaneous
  Country: JP (occurrence: JP)
  Receive Date: 20210401
  Receipt Date: 20210401
  Transmission Date: 20210717
  Serious: Yes (Hospitalization, Other)
  Sender: FDA-Public Use
  Company Number: JP-HISAMITSU PHARMACEUTICAL CO., INC.-2021AU002679

PATIENT
  Age: 73 Year
  Sex: Male

DRUGS (3)
  1. ASENAPINE. [Suspect]
     Active Substance: ASENAPINE
     Indication: OFF LABEL USE
     Dosage: 5 MG/DAILY
     Route: 065
  2. ASENAPINE. [Suspect]
     Active Substance: ASENAPINE
     Indication: DEMENTIA ALZHEIMER^S TYPE
     Dosage: 10 MG/DAILY
     Route: 065
  3. GALANTAMINE. [Concomitant]
     Active Substance: GALANTAMINE
     Indication: DEMENTIA ALZHEIMER^S TYPE
     Dosage: 8 MG, DAILY
     Route: 065

REACTIONS (2)
  - Tourette^s disorder [Recovered/Resolved]
  - Off label use [Recovered/Resolved]
